FAERS Safety Report 5226067-9 (Version None)
Quarter: 2007Q1

REPORT INFORMATION
  Report Type: 
  Country: None (occurrence: None)
  Receive Date: 20070129
  Receipt Date: 20070117
  Transmission Date: 20070707
  Serious: Yes (Other)
  Sender: FDA-Public Use
  Company Number: A-JP2006-13677

PATIENT
  Age: 37 Year
  Sex: Female

DRUGS (7)
  1. TRACLEER [Suspect]
     Indication: PULMONARY HYPERTENSION
     Dosage: 62.5 MG, BID, ORAL; 31.25 MG, BID, ORAL
     Route: 048
     Dates: start: 20060706, end: 20060727
  2. TRACLEER [Suspect]
     Indication: PULMONARY HYPERTENSION
     Dosage: 62.5 MG, BID, ORAL; 31.25 MG, BID, ORAL
     Route: 048
     Dates: start: 20060907
  3. CEFACLOR [Suspect]
     Dates: start: 20061023, end: 20061027
  4. BERAPROST SODIUM (BERAPROST SODIUM) [Concomitant]
  5. OXYGEN (OXYGEN) [Concomitant]
  6. CEFCAPENE PIVOXIL HYDROCHLORIDE (CEFCAPENE PIVOXIL HYDROCHLORIDE) [Suspect]
  7. WARFARIN SODIUM [Suspect]

REACTIONS (9)
  - ABORTION INDUCED [None]
  - ABORTION MISSED [None]
  - ALANINE AMINOTRANSFERASE INCREASED [None]
  - ASPARTATE AMINOTRANSFERASE INCREASED [None]
  - BLOOD ALKALINE PHOSPHATASE INCREASED [None]
  - DRUG EXPOSURE DURING PREGNANCY [None]
  - DRUG INTERACTION [None]
  - UNINTENDED PREGNANCY [None]
  - UTERUS EVACUATION [None]
